FAERS Safety Report 7169817-7 (Version None)
Quarter: 2010Q4

REPORT INFORMATION
  Report Type: 
  Country: None (occurrence: None)
  Receive Date: 20101203
  Receipt Date: 20101118
  Transmission Date: 20110411
  Serious: Yes (Life-Threatening, Hospitalization)
  Sender: FDA-Public Use
  Company Number: 1000017489

PATIENT
  Age: 58 Year
  Sex: Female

DRUGS (3)
  1. ESCITALOPRAM [Suspect]
     Dosage: 20 MG (20 MG, 1 IN 1 D), ORAL
     Route: 048
  2. RIVOTRIL (CLONAZEPAM) (DROPS (FOR ORAL USE)) [Suspect]
     Dosage: 15 GTT (15 GTT, 1 IN 1 D), ORAL
     Route: 048
     Dates: end: 20100927
  3. DAFALGAN (PARACETAMOL) (PARACETAMOL) [Concomitant]

REACTIONS (5)
  - COMA [None]
  - DELIRIUM [None]
  - DEPRESSION [None]
  - DRUG TOXICITY [None]
  - POISONING DELIBERATE [None]
